FAERS Safety Report 8890548 (Version 4)
Quarter: 2013Q1

REPORT INFORMATION
  Report Type: Spontaneous
  Country: JP (occurrence: JP)
  Receive Date: 20121107
  Receipt Date: 20130122
  Transmission Date: 20140127
  Serious: Yes (Other)
  Sender: FDA-Public Use
  Company Number: JP-ROCHE-1152069

PATIENT
  Age: 71 Year
  Sex: Male
  Weight: 58 kg

DRUGS (9)
  1. AVASTIN [Suspect]
     Indication: LUNG ADENOCARCINOMA RECURRENT
     Dosage: 800 MG EVERY 3 WEEKS
     Route: 041
     Dates: start: 20120523, end: 20120726
  2. PACLITAXEL [Suspect]
     Indication: LUNG ADENOCARCINOMA RECURRENT
     Route: 041
     Dates: start: 20120523, end: 20120726
  3. CARBOPLATIN [Suspect]
     Indication: LUNG ADENOCARCINOMA RECURRENT
     Route: 041
     Dates: start: 20120523, end: 20120726
  4. MYSLEE [Suspect]
     Indication: INSOMNIA
     Route: 048
     Dates: start: 20120523
  5. ALIMTA [Suspect]
     Indication: LUNG NEOPLASM MALIGNANT
     Dosage: DOSAGE IS UNCERTAIN
     Route: 041
  6. CELECOX [Concomitant]
     Dosage: DOSAGE IS UNCERTAIN.
     Route: 048
  7. REBAMIPIDE [Concomitant]
     Dosage: DOSAGE IS UNCERTAIN.
     Route: 048
  8. THEOLONG [Concomitant]
     Dosage: DOSAGE IS UNCERTAIN.
     Route: 048
  9. RESPLEN [Concomitant]
     Dosage: DOSAGE IS UNCERTAIN.
     Route: 048

REACTIONS (2)
  - Pancreatitis acute [Recovering/Resolving]
  - Neuropathy peripheral [Unknown]
